FAERS Safety Report 5277678-6 (Version None)
Quarter: 2007Q1

REPORT INFORMATION
  Report Type: 
  Country: None (occurrence: None)
  Receive Date: 20070320
  Receipt Date: 20070306
  Transmission Date: 20070707
  Serious: Yes (Other)
  Sender: FDA-Public Use
  Company Number: B0461987A

PATIENT
  Age: 47 Year
  Sex: Female

DRUGS (5)
  1. EPIVIR [Suspect]
  2. TENOFOVIR (FORMULATION UNKNOWN) (TENOFOVIR) [Suspect]
  3. LOPINAVIR + RITONAVIR (FORMULATION UNKNOWN) (LOPINAVIR + RITONAVIR) [Suspect]
  4. CO-TRIMOXAZOLE [Concomitant]
  5. AZITHROMYCIN [Concomitant]

REACTIONS (7)
  - ANTI-HBC IGM ANTIBODY POSITIVE [None]
  - CONDITION AGGRAVATED [None]
  - GALLBLADDER DISORDER [None]
  - HEPATITIS [None]
  - HEPATITIS B SURFACE ANTIGEN POSITIVE [None]
  - HEPATOTOXICITY [None]
  - IMMUNE RECONSTITUTION SYNDROME [None]
